FAERS Safety Report 4686512-4 (Version None)
Quarter: 2005Q2

REPORT INFORMATION
  Report Type: 
  Country: None (occurrence: None)
  Receive Date: 20050609
  Receipt Date: 20050602
  Transmission Date: 20051028
  Serious: Yes (Hospitalization, Other)
  Sender: FDA-Public Use
  Company Number: PHBS2005JP08036

PATIENT
  Sex: Male

DRUGS (2)
  1. GLEEVEC [Suspect]
     Route: 048
     Dates: start: 20050201, end: 20050401
  2. GLEEVEC [Suspect]
     Route: 048
     Dates: start: 20050401, end: 20050501

REACTIONS (7)
  - ABASIA [None]
  - DIZZINESS [None]
  - GAIT DISTURBANCE [None]
  - NAUSEA [None]
  - RASH [None]
  - SENSATION OF HEAVINESS [None]
  - SWELLING [None]
